FAERS Safety Report 10350921 (Version 1)
Quarter: 2014Q3

REPORT INFORMATION
  Report Type: Spontaneous
  Country: US (occurrence: US)
  Receive Date: 20140730
  Receipt Date: 20140730
  Transmission Date: 20150326
  Serious: No
  Sender: FDA-Public Use
  Company Number: US-009507513-1407USA008351

PATIENT
  Age: 41 Year
  Sex: Female

DRUGS (1)
  1. NUVARING [Suspect]
     Active Substance: ETHINYL ESTRADIOL\ETONOGESTREL
     Dosage: 3 WEEKS IN, 1 WEEK OUT, 1 RING
     Route: 067
     Dates: start: 20140709

REACTIONS (2)
  - Mood swings [Unknown]
  - Metrorrhagia [Unknown]

NARRATIVE: CASE EVENT DATE: 20140710
